FAERS Safety Report 4659635-3 (Version None)
Quarter: 2005Q2

REPORT INFORMATION
  Report Type: 
  Country: None (occurrence: None)
  Receive Date: 20050411
  Receipt Date: 20050118
  Transmission Date: 20051028
  Serious: No
  Sender: FDA-Public Use
  Company Number: A03200500191

PATIENT
  Sex: Male

DRUGS (3)
  1. UROXATRAL [Suspect]
     Dosage: ORAL
     Route: 048
  2. FLECAINIDE ACETATE [Concomitant]
  3. LISINOPRIL [Concomitant]

REACTIONS (1)
  - HEART RATE IRREGULAR [None]
